APPROVED DRUG PRODUCT: EMTRICITABINE, RILPIVIRINE, AND TENOFOVIR ALAFENAMIDE
Active Ingredient: EMTRICITABINE; RILPIVIRINE HYDROCHLORIDE; TENOFOVIR ALAFENAMIDE FUMARATE
Strength: 200MG;EQ 25MG BASE;EQ 25MG BASE
Dosage Form/Route: TABLET;ORAL
Application: A214095 | Product #001 | TE Code: AB
Applicant: APOTEX INC
Approved: Jan 30, 2026 | RLD: No | RS: No | Type: RX